FAERS Safety Report 19850491 (Version 1)
Quarter: 2021Q3

REPORT INFORMATION
  Report Type: Report from Study
  Country: DE (occurrence: DE)
  Receive Date: 20210918
  Receipt Date: 20210918
  Transmission Date: 20211014
  Serious: Yes (Hospitalization, Other)
  Sender: FDA-Public Use
  Company Number: DE-JNJFOC-A-CH2018-174777

PATIENT
  Age: 66 Year
  Sex: Female
  Weight: 55 kg

DRUGS (25)
  1. RAMIPRIL. [Concomitant]
     Active Substance: RAMIPRIL
     Indication: HYPERTENSION
     Dosage: UNK
     Route: 048
     Dates: start: 2011
  2. CELLCEPT [Concomitant]
     Active Substance: MYCOPHENOLATE MOFETIL\MYCOPHENOLATE MOFETIL HYDROCHLORIDE
     Indication: IMMUNOSUPPRESSANT DRUG THERAPY
     Dosage: UNK
     Route: 048
     Dates: start: 20111128
  3. XIPAMID [Concomitant]
     Active Substance: XIPAMIDE
     Indication: OEDEMA
     Dosage: UNK
     Route: 048
     Dates: start: 20180808
  4. MACITENTAN [Suspect]
     Active Substance: MACITENTAN
     Indication: PULMONARY ARTERIAL HYPERTENSION
     Dosage: 10 MG, QD
     Route: 048
     Dates: start: 20180418, end: 20180609
  5. FOLSAN [Concomitant]
     Active Substance: FOLIC ACID
     Dosage: UNK
     Route: 048
     Dates: start: 2016
  6. CLOPIDOGREL [Concomitant]
     Active Substance: CLOPIDOGREL BISULFATE
     Dosage: UNK
     Route: 048
     Dates: start: 201802, end: 201902
  7. PANTOZOL [Concomitant]
     Active Substance: PANTOPRAZOLE SODIUM
     Dosage: UNK
     Route: 048
     Dates: start: 2011
  8. MACITENTAN [Suspect]
     Active Substance: MACITENTAN
     Dosage: 5 MG, QD
     Route: 048
     Dates: start: 20180609, end: 20180831
  9. ASPIRIN. [Concomitant]
     Active Substance: ASPIRIN
     Indication: ANTIPLATELET THERAPY
     Dosage: UNK
     Route: 048
     Dates: start: 20191014
  10. AMLODIPIN [Concomitant]
     Active Substance: AMLODIPINE BESYLATE
     Indication: HYPERTENSION
     Dosage: UNK
     Route: 048
     Dates: start: 2012
  11. FLUVASTATIN [Concomitant]
     Active Substance: FLUVASTATIN SODIUM
     Dosage: UNK
     Route: 048
     Dates: start: 2011
  12. METOPROLOL. [Concomitant]
     Active Substance: METOPROLOL
     Dosage: UNK
     Route: 048
     Dates: start: 2011
  13. PHENPROCOUMON [Concomitant]
     Active Substance: PHENPROCOUMON
     Indication: CORONARY ARTERY DISEASE
  14. TORASEMIDE [Concomitant]
     Active Substance: TORSEMIDE
     Indication: DIURETIC THERAPY
     Dosage: UNK
     Route: 048
     Dates: start: 2011
  15. SALBUTAMOL [Concomitant]
     Active Substance: ALBUTEROL
     Indication: DYSPNOEA
     Dosage: UNK
     Route: 055
     Dates: start: 2017
  16. ALDACTONE [Concomitant]
     Active Substance: SPIRONOLACTONE
     Indication: RENAL TRANSPLANT
     Dosage: UNK
     Route: 048
     Dates: start: 2011
  17. MAGNESIUM DIASPORAL [Concomitant]
     Active Substance: MAGNESIUM
     Dosage: UNK
     Route: 048
  18. ADVAGRAF [Concomitant]
     Active Substance: TACROLIMUS
     Indication: IMMUNOSUPPRESSANT DRUG THERAPY
     Dosage: UNK
     Route: 048
     Dates: start: 2016, end: 20190924
  19. ARANESP [Concomitant]
     Active Substance: DARBEPOETIN ALFA
     Indication: ANAEMIA PROPHYLAXIS
     Dosage: UNK
     Route: 058
     Dates: start: 20190613
  20. URBASON [Concomitant]
     Active Substance: METHYLPREDNISOLONE
     Indication: IMMUNOSUPPRESSANT DRUG THERAPY
     Dosage: UNK
     Route: 048
     Dates: start: 20111128
  21. MARCUMAR [Concomitant]
     Active Substance: PHENPROCOUMON
     Indication: MYOCARDIAL INFARCTION
     Dosage: UNK
     Route: 048
     Dates: start: 201302
  22. REVATIO [Concomitant]
     Active Substance: SILDENAFIL CITRATE
     Dosage: 60 MG, QD
     Dates: start: 20161109
  23. EPOETIN BETA [Concomitant]
     Active Substance: ERYTHROPOIETIN
     Indication: ANAEMIA
     Dosage: UNK
     Route: 058
     Dates: start: 20180706, end: 20180716
  24. PHENPROCOUMON [Concomitant]
     Active Substance: PHENPROCOUMON
     Indication: INFARCTION
     Dosage: UNK
     Route: 048
     Dates: start: 201302, end: 20190918
  25. DEKRISTOL [Concomitant]
     Active Substance: CHOLECALCIFEROL
     Indication: VITAMIN D
     Dosage: UNK
     Route: 048
     Dates: start: 20181019

REACTIONS (10)
  - Dyspnoea [Recovered/Resolved]
  - Haemodialysis [Unknown]
  - Condition aggravated [Unknown]
  - Oedema [Unknown]
  - Anaemia [Unknown]
  - Oedema peripheral [Unknown]
  - Chest discomfort [Recovered/Resolved]
  - Cardiac failure [Unknown]
  - Renal impairment [Unknown]
  - Peripheral arterial occlusive disease [Unknown]

NARRATIVE: CASE EVENT DATE: 201806
